FAERS Safety Report 9197969 (Version 1)
Quarter: 2013Q1

REPORT INFORMATION
  Report Type: Spontaneous
  Country: US (occurrence: US)
  Receive Date: 20130328
  Receipt Date: 20130328
  Transmission Date: 20140127
  Serious: Yes (Other)
  Sender: FDA-Public Use
  Company Number: CHPA2013US005281

PATIENT
  Age: 74 Year
  Sex: Female

DRUGS (3)
  1. EXCEDRIN TENSION HEADACHE [Suspect]
     Indication: HEADACHE
     Dosage: 1 PILL, PRN
     Route: 048
  2. AMBIEN [Concomitant]
     Indication: SLEEP DISORDER
  3. HYDROCODEINE [Concomitant]

REACTIONS (2)
  - Perforated ulcer [Unknown]
  - Incorrect dose administered [Unknown]
